FAERS Safety Report 23088791 (Version 1)
Quarter: 2023Q4

REPORT INFORMATION
  Report Type: Spontaneous
  Country: US (occurrence: US)
  Receive Date: 20231020
  Receipt Date: 20231020
  Transmission Date: 20240109
  Serious: Yes (Hospitalization, Other)
  Sender: FDA-Public Use
  Company Number: US-HIKMA PHARMACEUTICALS USA INC.-US-H14001-23-66026

PATIENT

DRUGS (1)
  1. INFUMORPH [Suspect]
     Active Substance: MORPHINE SULFATE
     Indication: Spinal pain
     Dosage: 0.049 MILLIGRAM
     Route: 037

REACTIONS (6)
  - Wound haematoma [Recovered/Resolved]
  - Abdominal wall oedema [Recovered/Resolved]
  - Thrombosis [Recovered/Resolved]
  - Abdominal wall haemorrhage [Recovered/Resolved]
  - Contusion [Recovered/Resolved]
  - Headache [Recovered/Resolved]

NARRATIVE: CASE EVENT DATE: 20160118
